FAERS Safety Report 7645902-8 (Version None)
Quarter: 2011Q3

REPORT INFORMATION
  Report Type: 
  Country: None (occurrence: None)
  Receive Date: 20110729
  Receipt Date: 20110720
  Transmission Date: 20111222
  Serious: Yes (Other)
  Sender: FDA-Public Use
  Company Number: US-ASTRAZENECA-2007UW20449

PATIENT
  Age: 33 Year
  Sex: Female
  Weight: 59 kg

DRUGS (14)
  1. SEROQUEL [Suspect]
     Indication: SLEEP DISORDER
     Route: 048
     Dates: start: 20010101, end: 20070101
  2. SEROQUEL [Suspect]
     Dosage: 1 TO 2 TAB HS
     Route: 048
     Dates: start: 20020201
  3. ABILIFY [Concomitant]
     Dates: start: 20040101
  4. SEROQUEL [Suspect]
     Route: 048
     Dates: start: 20010101, end: 20070101
  5. SEROQUEL [Suspect]
     Dosage: 1 TO 2 TAB HS
     Route: 048
     Dates: start: 20020201
  6. ZYPREXA [Concomitant]
     Dosage: ONE TO TWO PO HS
     Dates: start: 20020307
  7. CLONAZEPAM [Concomitant]
     Indication: ANXIETY
     Dates: start: 20020307
  8. SEROQUEL [Suspect]
     Indication: BIPOLAR DISORDER
     Route: 048
     Dates: start: 20010101, end: 20070101
  9. SEROQUEL [Suspect]
     Indication: INSOMNIA
     Route: 048
     Dates: start: 20010101, end: 20070101
  10. SEROQUEL [Suspect]
     Route: 048
     Dates: start: 20010101, end: 20070101
  11. SEROQUEL [Suspect]
     Dosage: 1 TO 2 TAB HS
     Route: 048
     Dates: start: 20020201
  12. THORAZINE [Concomitant]
     Dates: start: 20000101
  13. SEROQUEL [Suspect]
     Route: 048
     Dates: start: 20010101, end: 20070101
  14. LITHIUM CARBONATE [Concomitant]
     Dates: start: 20020417

REACTIONS (7)
  - GESTATIONAL DIABETES [None]
  - TYPE 2 DIABETES MELLITUS [None]
  - BLOOD CHOLESTEROL INCREASED [None]
  - HYPERLIPIDAEMIA [None]
  - ROAD TRAFFIC ACCIDENT [None]
  - HYPERTENSION [None]
  - DIABETIC NEUROPATHY [None]
